FAERS Safety Report 9057176 (Version 1)
Quarter: 2013Q1

REPORT INFORMATION
  Report Type: Spontaneous
  Country: NL (occurrence: NL)
  Receive Date: 20130131
  Receipt Date: 20130131
  Transmission Date: 20140127
  Serious: Yes (Hospitalization, Other)
  Sender: FDA-Public Use
  Company Number: NL-PFIZER INC-2013033030

PATIENT
  Age: 68 Year
  Sex: Male

DRUGS (4)
  1. TRAMADOL HCL [Suspect]
     Indication: PAIN IN EXTREMITY
     Dosage: 50 MG, 3X/DAY
     Dates: start: 201212, end: 20121224
  2. GEMFIBROZIL [Interacting]
     Dosage: 600 MG, 3X/DAY
     Dates: start: 2011, end: 20121224
  3. CRESTOR [Interacting]
     Indication: HYPERCHOLESTEROLAEMIA
     Dosage: 5 MG, 1X/DAY
     Dates: start: 201211, end: 20121224
  4. TRYPTIZOL [Interacting]
     Indication: DEPRESSION
     Dosage: 50 MG, 3X/DAY
     Dates: start: 2006

REACTIONS (6)
  - Suicidal behaviour [Unknown]
  - Rhabdomyolysis [Recovered/Resolved with Sequelae]
  - Confusional state [Recovered/Resolved]
  - Urinary retention [Recovered/Resolved]
  - Drug interaction [Recovered/Resolved with Sequelae]
  - Myalgia [Unknown]
